FAERS Safety Report 17744102 (Version 1)
Quarter: 2020Q2

REPORT INFORMATION
  Report Type: Report from Study
  Country: PK (occurrence: PK)
  Receive Date: 20200505
  Receipt Date: 20200505
  Transmission Date: 20200714
  Serious: Yes (Death, Hospitalization)
  Sender: FDA-Public Use
  Company Number: NVSC2020PK120912

PATIENT
  Age: 64 Year
  Sex: Female
  Weight: 73 kg

DRUGS (1)
  1. TASIGNA [Suspect]
     Active Substance: NILOTINIB
     Indication: CHRONIC MYELOID LEUKAEMIA
     Dosage: 800 MG, (2+2) BID
     Route: 048
     Dates: start: 20161021, end: 20200423

REACTIONS (5)
  - Dyspnoea [Unknown]
  - Malignant neoplasm progression [Fatal]
  - Overdose [Unknown]
  - Chronic myeloid leukaemia [Fatal]
  - Splenomegaly [Unknown]

NARRATIVE: CASE EVENT DATE: 20200502
